FAERS Safety Report 14938700 (Version 2)
Quarter: 2020Q3

REPORT INFORMATION
  Report Type: Report from Study
  Country: US (occurrence: US)
  Receive Date: 20180525
  Receipt Date: 20200706
  Transmission Date: 20201102
  Serious: Yes (Other)
  Sender: FDA-Public Use
  Company Number: US-ASTELLAS-2018US023737

PATIENT
  Age: 66 Year
  Sex: Female

DRUGS (1)
  1. MIRABEGRON [Suspect]
     Active Substance: MIRABEGRON
     Indication: MIXED INCONTINENCE
     Route: 048
     Dates: end: 20191107

REACTIONS (7)
  - Illness [Unknown]
  - Bladder disorder [Unknown]
  - Product availability issue [Unknown]
  - Oropharyngeal pain [Unknown]
  - Nasal congestion [Unknown]
  - Cough [Unknown]
  - Deafness [Unknown]

NARRATIVE: CASE EVENT DATE: 201911
